FAERS Safety Report 24957448 (Version 1)
Quarter: 2025Q1

REPORT INFORMATION
  Report Type: Spontaneous
  Country: US (occurrence: US)
  Receive Date: 20250212
  Receipt Date: 20250212
  Transmission Date: 20250409
  Serious: No
  Sender: Kenvue
  Company Number: US-KENVUE-20250111866

PATIENT
  Age: 84 Year
  Sex: Female

DRUGS (1)
  1. TYLENOL 8 HR ARTHRITIS PAIN [Suspect]
     Active Substance: ACETAMINOPHEN
     Indication: Neuralgia
     Dosage: 1 DOSAGE FORM, TWICE A DAY
     Route: 065
     Dates: start: 202412

REACTIONS (4)
  - Inappropriate schedule of product administration [Unknown]
  - Expired product administered [Unknown]
  - Incorrect dose administered [Unknown]
  - Product administration error [Unknown]

NARRATIVE: CASE EVENT DATE: 20241201
